FAERS Safety Report 18625521 (Version 2)
Quarter: 2020Q4

REPORT INFORMATION
  Report Type: Spontaneous
  Country: US (occurrence: US)
  Receive Date: 20201216
  Receipt Date: 20201217
  Transmission Date: 20210114
  Serious: Yes (Hospitalization, Disabling, Other)
  Sender: FDA-Public Use
  Company Number: US-ELI_LILLY_AND_COMPANY-US202012003659

PATIENT
  Age: 71 Year
  Sex: Male

DRUGS (2)
  1. HUMALOG [Suspect]
     Active Substance: INSULIN LISPRO
     Indication: DIABETES MELLITUS
     Dosage: UNK UNK, UNKNOWN
     Route: 058
  2. HUMALOG [Suspect]
     Active Substance: INSULIN LISPRO
     Dosage: UNK UNK, UNKNOWN
     Route: 058

REACTIONS (8)
  - Aphasia [Not Recovered/Not Resolved]
  - Vocal cord paralysis [Unknown]
  - Myelitis [Not Recovered/Not Resolved]
  - Thyroid cancer [Recovered/Resolved]
  - Spinal stenosis [Recovered/Resolved]
  - Lower limb fracture [Recovered/Resolved]
  - Degenerative bone disease [Not Recovered/Not Resolved]
  - Fall [Recovered/Resolved]

NARRATIVE: CASE EVENT DATE: 201909
